FAERS Safety Report 6307049-2 (Version None)
Quarter: 2009Q3

REPORT INFORMATION
  Report Type: 
  Country: None (occurrence: None)
  Receive Date: 20090812
  Receipt Date: 20090803
  Transmission Date: 20100115
  Serious: Yes (Death)
  Sender: FDA-Public Use
  Company Number: TW-BAXTER-2009BH009771

PATIENT
  Age: 69 Year
  Sex: Male

DRUGS (3)
  1. DIANEAL [Suspect]
     Indication: PERITONEAL DIALYSIS
     Route: 033
     Dates: start: 20090501
  2. DIANEAL [Suspect]
     Route: 033
     Dates: start: 20090501
  3. NUTRINEAL PD4 UNKNOWN BAG [Suspect]
     Indication: PERITONEAL DIALYSIS
     Route: 033
     Dates: start: 20090501

REACTIONS (1)
  - CARDIAC DISORDER [None]
